FAERS Safety Report 8895887 (Version 1)
Quarter: 2012Q4

REPORT INFORMATION
  Report Type: Report from Study
  Country: US (occurrence: US)
  Receive Date: 20121108
  Receipt Date: 20121108
  Transmission Date: 20130627
  Serious: Yes (Other)
  Sender: FDA-Public Use
  Company Number: US-ABBOTT-12P-163-1003227-00

PATIENT
  Age: 55 Year
  Sex: Female

DRUGS (1)
  1. HUMIRA [Suspect]
     Indication: RHEUMATOID ARTHRITIS
     Dates: start: 2003

REACTIONS (10)
  - Exostosis [Unknown]
  - Ovarian operation [Not Recovered/Not Resolved]
  - Hypothyroidism [Not Recovered/Not Resolved]
  - Hypertension [Unknown]
  - Cataract [Unknown]
  - Liquid product physical issue [Unknown]
  - Dizziness [Unknown]
  - Dehydration [Unknown]
  - Dry mouth [Unknown]
  - Balance disorder [Unknown]
